FAERS Safety Report 9384162 (Version 1)
Quarter: 2013Q3

REPORT INFORMATION
  Report Type: Spontaneous
  Country: US (occurrence: None)
  Receive Date: 20130702
  Receipt Date: 20130702
  Transmission Date: 20140515
  Serious: Yes (Other)
  Sender: FDA-Public Use
  Company Number: None

PATIENT
  Age: 24 Year
  Sex: Male
  Weight: 79.38 kg

DRUGS (1)
  1. CIPROFLOXACIN [Suspect]
     Route: 048
     Dates: start: 20130613

REACTIONS (4)
  - Tremor [None]
  - Agitation [None]
  - Dizziness [None]
  - Visual impairment [None]
